FAERS Safety Report 5256138-2 (Version None)
Quarter: 2007Q1

REPORT INFORMATION
  Report Type: 
  Country: None (occurrence: None)
  Receive Date: 20070306
  Receipt Date: 20070228
  Transmission Date: 20070707
  Serious: Yes (Disabling, Other)
  Sender: FDA-Public Use
  Company Number: 2006UW18805

PATIENT
  Age: 49 Year
  Sex: Female
  Weight: 72.7 kg

DRUGS (3)
  1. SEROQUEL [Suspect]
     Indication: DEPRESSION
     Route: 048
     Dates: start: 20060327
  2. SEROQUEL [Suspect]
     Indication: ANXIETY
     Route: 048
     Dates: start: 20060327
  3. KLONOPIN [Concomitant]
     Indication: ANXIETY
     Route: 048
     Dates: start: 20060327

REACTIONS (1)
  - SUICIDAL IDEATION [None]
